FAERS Safety Report 20471721 (Version 1)
Quarter: 2022Q1

REPORT INFORMATION
  Report Type: Report from Study
  Country: AT (occurrence: AT)
  Receive Date: 20220214
  Receipt Date: 20220214
  Transmission Date: 20220423
  Serious: Yes (Other)
  Sender: FDA-Public Use
  Company Number: AT-ROCHE-2769966

PATIENT
  Age: 58 Year
  Sex: Female
  Weight: 71 kg

DRUGS (29)
  1. TRASTUZUMAB [Suspect]
     Active Substance: TRASTUZUMAB
     Indication: HER2 positive breast cancer
     Dosage: 426 MG, EVERY 3 WEEKS
     Route: 041
     Dates: start: 20190429, end: 20190725
  2. TRASTUZUMAB [Suspect]
     Active Substance: TRASTUZUMAB
     Dosage: 426 MG, EVERY 3 WEEKS
     Route: 041
     Dates: start: 20190918, end: 20210511
  3. TRASTUZUMAB [Suspect]
     Active Substance: TRASTUZUMAB
     Dosage: 568 MG, EVERY 3 WEEKS
     Route: 041
     Dates: start: 20190403, end: 20190403
  4. PACLITAXEL [Suspect]
     Active Substance: PACLITAXEL
     Indication: HER2 positive breast cancer
     Dosage: 143.11 MG, WEEKLY
     Route: 042
     Dates: start: 20190403, end: 20190624
  5. PERTUZUMAB [Suspect]
     Active Substance: PERTUZUMAB
     Indication: HER2 positive breast cancer
     Dosage: 420 MG, EVERY 3 WEEKS, (ON 18SEP2019: MOST RECENT DOSE OF PERTUZUMAB PRIOR TO THE EVENT)
     Route: 042
     Dates: start: 20190918, end: 20210511
  6. PERTUZUMAB [Suspect]
     Active Substance: PERTUZUMAB
     Dosage: 420 MG, EVERY 3 WEEKS
     Route: 042
     Dates: start: 20190429, end: 20190725
  7. PERTUZUMAB [Suspect]
     Active Substance: PERTUZUMAB
     Dosage: 840 MG, EVERY 3 WEEKS
     Route: 042
     Dates: start: 20190403, end: 20190403
  8. RANITIDINE HYDROCHLORIDE [Concomitant]
     Active Substance: RANITIDINE HYDROCHLORIDE
     Dosage: UNK, WEEKLY
     Route: 042
     Dates: start: 20190403, end: 20190624
  9. PROLIA [Concomitant]
     Active Substance: DENOSUMAB
     Dosage: UNK
     Dates: end: 20190809
  10. ESOMEPRAZOLE [Concomitant]
     Active Substance: ESOMEPRAZOLE
     Dosage: 40 MG, 1X/DAY
     Route: 048
     Dates: start: 20190809
  11. EMSER [EMSER SALT] [Concomitant]
     Dosage: UNK
     Dates: start: 20191009
  12. DOXYCYCLINE [Concomitant]
     Active Substance: DOXYCYCLINE
     Indication: Wound infection
     Dosage: 200 MG, 1X/DAY
     Route: 048
     Dates: start: 20210923, end: 20211006
  13. LOVENOX [Concomitant]
     Active Substance: ENOXAPARIN SODIUM
     Dosage: UNK, 1X/DAY
     Route: 058
     Dates: start: 20190809
  14. COMIRNATY [Concomitant]
     Active Substance: TOZINAMERAN
     Dosage: DOSE NUMBER UNKNOWN, 0.3ML SINGLE
     Route: 030
     Dates: start: 20210216, end: 20210216
  15. ACETAMINOPHEN\CODEINE PHOSPHATE [Concomitant]
     Active Substance: ACETAMINOPHEN\CODEINE PHOSPHATE
     Dosage: UNK
     Route: 048
     Dates: start: 20191009
  16. FENAKUT [Concomitant]
     Dosage: UNK UNK, WEEKLY
     Route: 042
     Dates: start: 20190403, end: 20190624
  17. CYANOCOBALAMIN\PYRIDOXINE HYDROCHLORIDE\THIAMINE [Concomitant]
     Active Substance: CYANOCOBALAMIN\PYRIDOXINE HYDROCHLORIDE\THIAMINE
     Indication: Wound infection
     Dosage: UNK UNK, 2X/DAY
     Route: 048
     Dates: start: 20210803, end: 20211007
  18. ASCORBIC ACID/CALCIUM PHOSPHATE/CITRIC ACID/COLECALCIFEROL [Concomitant]
     Dosage: ONGOING = CHECKED500MG/800IE
     Route: 048
     Dates: start: 20190809
  19. LEVOTHYROXINE SODIUM [Concomitant]
     Active Substance: LEVOTHYROXINE SODIUM
     Dosage: ONGOING = CHECKED
     Route: 048
  20. LYRICA [Concomitant]
     Active Substance: PREGABALIN
     Indication: Wound infection
     Dosage: 75 MG, 1X/DAY
     Route: 048
     Dates: start: 20210923
  21. KCL [Concomitant]
     Active Substance: POTASSIUM CHLORIDE
     Dosage: 600 MG, 2X/DAY
     Route: 048
     Dates: start: 20191023
  22. EMEND [Concomitant]
     Active Substance: APREPITANT
     Dosage: 80 MG, 1X/DAY
     Route: 048
     Dates: start: 20211014, end: 20211016
  23. NOVALGIN (METAMIZOLE SODIUM) [Concomitant]
     Active Substance: METAMIZOLE SODIUM
     Dosage: 500 MG
     Route: 048
     Dates: start: 20191023
  24. NOVALGIN (METAMIZOLE SODIUM) [Concomitant]
     Active Substance: METAMIZOLE SODIUM
     Dosage: 500 MG, 4X/DAY
     Route: 048
     Dates: start: 20191009, end: 20191023
  25. KYTRIL [Concomitant]
     Active Substance: GRANISETRON HYDROCHLORIDE
     Dosage: 1 AMPULE
     Route: 042
     Dates: start: 20211014
  26. KYTRIL [Concomitant]
     Active Substance: GRANISETRON HYDROCHLORIDE
     Dosage: UNK, WEEKLY
     Dates: start: 20190403, end: 20190624
  27. NOVALGIN (METAMIZOLE SODIUM) [Concomitant]
     Active Substance: METAMIZOLE SODIUM
     Indication: Wound infection
     Dosage: 500 MG
     Route: 048
     Dates: start: 20210824
  28. DEXAMETHASONE [Concomitant]
     Active Substance: DEXAMETHASONE
     Dosage: 12 MG, 2X/DAY
     Route: 048
     Dates: start: 20211014, end: 20211016
  29. DEXABENE [Concomitant]
     Dosage: 12 MG, WEEKLY
     Route: 042
     Dates: start: 20190403, end: 20190629

REACTIONS (1)
  - Wound infection [Recovered/Resolved]

NARRATIVE: CASE EVENT DATE: 20201113
